FAERS Safety Report 6177622-3 (Version None)
Quarter: 2009Q2

REPORT INFORMATION
  Report Type: 
  Country: None (occurrence: None)
  Receive Date: 20090501
  Receipt Date: 20090501
  Transmission Date: 20091009
  Serious: Yes (Life-Threatening)
  Sender: FDA-Public Use
  Company Number: None

PATIENT
  Age: 55 Year
  Sex: Male
  Weight: 63.5 kg

DRUGS (4)
  1. MIDAZOLAM HCL [Suspect]
     Indication: SEDATION
     Dosage: 6MG IV X 1
  2. PROTONIX [Concomitant]
  3. CEFTRIAXONE [Concomitant]
  4. OCTREOTIDE ACETATE [Concomitant]

REACTIONS (3)
  - DEPRESSED LEVEL OF CONSCIOUSNESS [None]
  - LETHARGY [None]
  - UNRESPONSIVE TO STIMULI [None]
